FAERS Safety Report 20428064 (Version 2)
Quarter: 2022Q1

REPORT INFORMATION
  Report Type: Spontaneous
  Country: BR (occurrence: BR)
  Receive Date: 20220204
  Receipt Date: 20220302
  Transmission Date: 20220424
  Serious: Yes (Death, Other)
  Sender: FDA-Public Use
  Company Number: BR-LUPIN PHARMACEUTICALS INC.-2022-01329

PATIENT
  Age: 25 Year
  Sex: Female

DRUGS (21)
  1. CARVEDILOL [Suspect]
     Active Substance: CARVEDILOL
     Indication: Heart disease congenital
     Dosage: 25 MG, QD
     Route: 065
  2. CARVEDILOL [Suspect]
     Active Substance: CARVEDILOL
     Dosage: 75 MG, QD
     Route: 065
  3. MORPHINE [Suspect]
     Active Substance: MORPHINE
     Indication: Product used for unknown indication
     Dosage: UNK
     Route: 065
  4. METHYLPREDNISOLONE [Suspect]
     Active Substance: METHYLPREDNISOLONE
     Indication: Severe acute respiratory syndrome
     Dosage: UNK
     Route: 065
     Dates: start: 2020
  5. FUROSEMIDE [Suspect]
     Active Substance: FUROSEMIDE
     Indication: Heart disease congenital
     Dosage: 40 MG, QD
     Route: 065
  6. FUROSEMIDE [Suspect]
     Active Substance: FUROSEMIDE
     Dosage: LOW-DOSE
     Route: 065
  7. FUROSEMIDE [Suspect]
     Active Substance: FUROSEMIDE
     Dosage: UNK
     Route: 065
  8. WARFARIN [Suspect]
     Active Substance: WARFARIN
     Indication: Anticoagulant therapy
     Dosage: UNK
     Route: 065
  9. PIPERACILLIN SODIUM\TAZOBACTAM SODIUM [Suspect]
     Active Substance: PIPERACILLIN SODIUM\TAZOBACTAM SODIUM
     Indication: Severe acute respiratory syndrome
     Dosage: UNK
     Route: 065
     Dates: start: 202006
  10. HEPARIN [Suspect]
     Active Substance: HEPARIN SODIUM
     Indication: Anticoagulant therapy
     Dosage: UNK
     Route: 065
     Dates: start: 202006
  11. AMIODARONE [Suspect]
     Active Substance: AMIODARONE
     Indication: Product used for unknown indication
     Dosage: UNK
     Route: 065
     Dates: start: 202006
  12. NOREPINEPHRINE [Suspect]
     Active Substance: NOREPINEPHRINE
     Indication: Product used for unknown indication
     Dosage: UNK
     Route: 065
     Dates: start: 202006
  13. DOBUTAMINE [Suspect]
     Active Substance: DOBUTAMINE HYDROCHLORIDE
     Indication: Product used for unknown indication
     Dosage: UNK
     Route: 065
     Dates: start: 202006
  14. MEROPENEM [Suspect]
     Active Substance: MEROPENEM
     Indication: Severe acute respiratory syndrome
     Dosage: UNK
     Route: 065
     Dates: start: 2020
  15. POLYMYXIN B [Suspect]
     Active Substance: POLYMYXIN B
     Indication: Severe acute respiratory syndrome
     Dosage: UNK
     Route: 065
     Dates: start: 2020
  16. AMIKACIN [Suspect]
     Active Substance: AMIKACIN
     Indication: Severe acute respiratory syndrome
     Dosage: UNK
     Route: 065
     Dates: start: 2020
  17. DAPTOMYCIN [Suspect]
     Active Substance: DAPTOMYCIN
     Indication: Severe acute respiratory syndrome
     Dosage: UNK
     Route: 065
     Dates: start: 2020
  18. MIDAZOLAM [Concomitant]
     Active Substance: MIDAZOLAM
     Indication: Sedative therapy
     Dosage: UNK
     Route: 065
  19. FENTANYL [Concomitant]
     Active Substance: FENTANYL
     Indication: Sedative therapy
     Dosage: UNK
     Route: 065
  20. CISATRACURIUM [Concomitant]
     Active Substance: CISATRACURIUM
     Indication: Neuromuscular blocking therapy
     Dosage: UNK
     Route: 065
  21. FLUCONAZOLE [Concomitant]
     Active Substance: FLUCONAZOLE
     Indication: Product used for unknown indication
     Dosage: UNK
     Route: 065

REACTIONS (11)
  - Death [Fatal]
  - Multiple organ dysfunction syndrome [Unknown]
  - COVID-19 [Unknown]
  - Septic shock [Unknown]
  - Acute respiratory failure [Unknown]
  - Cardiac output decreased [Unknown]
  - Gastrointestinal disorder [Unknown]
  - Respiratory tract haemorrhage [Unknown]
  - Premature delivery [Unknown]
  - Exposure during pregnancy [Recovered/Resolved]
  - Off label use [Unknown]

NARRATIVE: CASE EVENT DATE: 20200601
